FAERS Safety Report 6837643-1 (Version None)
Quarter: 2010Q3

REPORT INFORMATION
  Report Type: 
  Country: None (occurrence: None)
  Receive Date: 20100713
  Receipt Date: 20070517
  Transmission Date: 20110219
  Serious: Yes (Hospitalization, Other)
  Sender: FDA-Public Use
  Company Number: US-PFIZER INC-2007040160

PATIENT
  Sex: Female
  Weight: 49.9 kg

DRUGS (5)
  1. CHANTIX [Suspect]
     Indication: SMOKING CESSATION THERAPY
     Dates: start: 20070101
  2. TORADOL [Concomitant]
     Dates: start: 20070514
  3. PROCHLORPERAZINE [Concomitant]
     Dates: start: 20070514
  4. ESTROGEN NOS [Concomitant]
  5. VITAMINS [Concomitant]

REACTIONS (1)
  - MIGRAINE [None]
